FAERS Safety Report 9148782 (Version 2)
Quarter: 2013Q1

REPORT INFORMATION
  Report Type: Spontaneous
  Country: GR (occurrence: GR)
  Receive Date: 20130308
  Receipt Date: 20130328
  Transmission Date: 20140127
  Serious: Yes (Other)
  Sender: FDA-Public Use
  Company Number: GR-AMGEN-GRCSP2013014506

PATIENT
  Age: 80 Year
  Sex: Female

DRUGS (2)
  1. PROLIA [Suspect]
     Indication: OSTEOPOROSIS
     Dosage: 60 MG Q6MO
     Dates: start: 2012
  2. BISPHOSPHONATES [Concomitant]
     Indication: OSTEOPOROSIS

REACTIONS (1)
  - Dysplasia [Not Recovered/Not Resolved]
